FAERS Safety Report 8574645-1 (Version None)
Quarter: 2012Q3

REPORT INFORMATION
  Report Type: 
  Country: None (occurrence: None)
  Receive Date: 20120807
  Receipt Date: 20120724
  Transmission Date: 20120928
  Serious: Yes (Death, Hospitalization)
  Sender: FDA-Public Use
  Company Number: FR-RANBAXY-2011RR-46795

PATIENT
  Age: 17 Year
  Sex: Female

DRUGS (2)
  1. LOPERAMIDE [Suspect]
     Indication: OVERDOSE
     Dosage: 18 MG, SINGLE
     Route: 065
  2. TRIMEBUTINE [Suspect]
     Indication: OVERDOSE
     Dosage: 600 MG, SINGLE
     Route: 065

REACTIONS (2)
  - PANCREATIC ENZYMES INCREASED [None]
  - OVERDOSE [None]
